FAERS Safety Report 10041976 (Version 2)
Quarter: 2014Q2

REPORT INFORMATION
  Report Type: Spontaneous
  Country: HK (occurrence: HK)
  Receive Date: 20140327
  Receipt Date: 20140519
  Transmission Date: 20141212
  Serious: Yes (Other)
  Sender: FDA-Public Use
  Company Number: HK-JNJFOC-20140314927

PATIENT
  Sex: Male

DRUGS (2)
  1. ZYRTEC [Suspect]
     Route: 065
  2. ZYRTEC [Suspect]
     Indication: PRODUCT USED FOR UNKNOWN INDICATION
     Dosage: 1 TABLET
     Route: 065
     Dates: start: 20140308, end: 20140308

REACTIONS (3)
  - Nasal discomfort [Recovered/Resolved]
  - Dry throat [Recovered/Resolved]
  - Headache [Recovered/Resolved]
